FAERS Safety Report 18985907 (Version 1)
Quarter: 2021Q1

REPORT INFORMATION
  Report Type: Spontaneous
  Country: AU (occurrence: AU)
  Receive Date: 20210309
  Receipt Date: 20210309
  Transmission Date: 20210420
  Serious: Yes (Other)
  Sender: FDA-Public Use
  Company Number: AU-LUPIN PHARMACEUTICALS INC.-2021-02821

PATIENT
  Age: 34 Year
  Sex: Male

DRUGS (8)
  1. METOPROLOL. [Concomitant]
     Active Substance: METOPROLOL
     Indication: RIGHT-TO-LEFT CARDIAC SHUNT
     Dosage: UNK
     Route: 065
  2. BOSENTAN. [Concomitant]
     Active Substance: BOSENTAN
     Indication: RIGHT-TO-LEFT CARDIAC SHUNT
  3. BOSENTAN. [Concomitant]
     Active Substance: BOSENTAN
     Indication: VENTRICULAR SEPTAL DEFECT
     Dosage: UNK
     Route: 065
  4. WARFARIN [Concomitant]
     Active Substance: WARFARIN
     Indication: VENTRICULAR SEPTAL DEFECT
     Dosage: UNK
     Route: 065
  5. METOPROLOL. [Concomitant]
     Active Substance: METOPROLOL
     Indication: VENTRICULAR SEPTAL DEFECT
  6. WARFARIN [Concomitant]
     Active Substance: WARFARIN
     Indication: RIGHT-TO-LEFT CARDIAC SHUNT
  7. SILDENAFIL. [Suspect]
     Active Substance: SILDENAFIL
     Indication: RIGHT-TO-LEFT CARDIAC SHUNT
     Dosage: UNK
     Route: 065
  8. SILDENAFIL. [Suspect]
     Active Substance: SILDENAFIL
     Indication: VENTRICULAR SEPTAL DEFECT

REACTIONS (7)
  - Off label use [Unknown]
  - Hypotension [Unknown]
  - Retinal vascular disorder [Recovering/Resolving]
  - Retinal vascular disorder [Not Recovered/Not Resolved]
  - Maculopathy [Recovered/Resolved]
  - Visual field defect [Recovering/Resolving]
  - Retinal oedema [Recovered/Resolved]
